FAERS Safety Report 5770757-6 (Version None)
Quarter: 2008Q2

REPORT INFORMATION
  Report Type: 
  Country: None (occurrence: None)
  Receive Date: 20080613
  Receipt Date: 20080530
  Transmission Date: 20081010
  Serious: No
  Sender: FDA-Public Use
  Company Number: US-ABBOTT-08P-163-0451539-00

PATIENT
  Sex: Female
  Weight: 64.468 kg

DRUGS (16)
  1. HUMIRA [Suspect]
     Indication: CROHN'S DISEASE
     Dosage: LOADING DOSE
     Route: 058
     Dates: start: 20071231, end: 20071231
  2. HUMIRA [Suspect]
     Indication: COLITIS
     Route: 058
     Dates: start: 20080115, end: 20080115
  3. HUMIRA [Suspect]
     Dosage: LOADING DOSE
     Route: 058
     Dates: start: 20080221, end: 20080221
  4. HUMIRA [Suspect]
     Route: 058
     Dates: start: 20080303, end: 20080425
  5. HUMIRA [Suspect]
     Route: 058
     Dates: start: 20080425
  6. ESOMEPRAZOLE MAGNESIUM [Concomitant]
     Indication: GASTRIC DISORDER
     Route: 048
     Dates: start: 20080505
  7. ALPHA-D-GALACTOSIDASE [Concomitant]
     Indication: GASTRIC DISORDER
     Route: 048
     Dates: start: 20060101
  8. BALSALAZIDE DISODIUM [Concomitant]
     Indication: COLITIS
     Dosage: 750 X 4 TID
     Route: 048
     Dates: start: 20050101
  9. GLIMETIRIDE [Concomitant]
     Indication: DIABETES MELLITUS
     Route: 048
     Dates: start: 20040101
  10. TRIAMTERENE AND HYDROCHLOROTHIAZIDE [Concomitant]
     Indication: FLUID RETENTION
     Route: 048
     Dates: start: 19980101
  11. CLONAZEPAM [Concomitant]
     Indication: GASTRIC DISORDER
     Route: 048
     Dates: start: 20060101
  12. INEGY [Concomitant]
     Indication: BLOOD CHOLESTEROL
     Dosage: 10-20MG
     Dates: start: 20070101
  13. ESTRADIOL [Concomitant]
     Indication: BLOOD OESTROGEN
     Route: 048
     Dates: start: 20070701
  14. HYOSCYAMINE SULFATE [Concomitant]
     Indication: DRUG USE FOR UNKNOWN INDICATION
  15. LOPERAMIDE HYDROCHLORIDE [Concomitant]
     Indication: DRUG USE FOR UNKNOWN INDICATION
  16. LOMOTIL [Concomitant]
     Indication: DRUG USE FOR UNKNOWN INDICATION

REACTIONS (4)
  - INJECTION SITE BRUISING [None]
  - INJECTION SITE PAIN [None]
  - MUSCLE SPASMS [None]
  - PYREXIA [None]
